FAERS Safety Report 9820536 (Version 1)
Quarter: 2014Q1

REPORT INFORMATION
  Report Type: Spontaneous
  Country: US (occurrence: US)
  Receive Date: 20140116
  Receipt Date: 20140116
  Transmission Date: 20141002
  Serious: Yes (Hospitalization)
  Sender: FDA-Public Use
  Company Number: US-B.I. PHARMACEUTICALS,INC./RIDGEFIELD-2014-BI-01581BP

PATIENT
  Age: 89 Year
  Sex: Male

DRUGS (3)
  1. COMBIVENT [Suspect]
     Indication: CHRONIC OBSTRUCTIVE PULMONARY DISEASE
     Dosage: STRENGTH: 18 MCG / 103 MCG; DAILY DOSE: 144 MCG / 824 MCG
     Route: 055
     Dates: start: 2010
  2. ASPIRIN [Concomitant]
     Dosage: 81 MG
     Route: 048
  3. POTASSIUM [Concomitant]
     Dosage: 10 MEQ
     Route: 048

REACTIONS (1)
  - Cardiac failure [Recovered/Resolved]
